FAERS Safety Report 12618701 (Version 1)
Quarter: 2016Q3

REPORT INFORMATION
  Report Type: Spontaneous
  Country: US (occurrence: US)
  Receive Date: 20160803
  Receipt Date: 20160803
  Transmission Date: 20161109
  Serious: Yes (Death)
  Sender: FDA-Public Use
  Company Number: US-WEST-WARD PHARMACEUTICALS CORP.-US-H14001-16-01364

PATIENT
  Age: 41 Year
  Sex: Male

DRUGS (1)
  1. NICARDIPINE [Suspect]
     Active Substance: NICARDIPINE
     Indication: AORTIC DISSECTION
     Route: 041

REACTIONS (3)
  - Hypotension [Fatal]
  - Cerebral infarction [Fatal]
  - Coma [Fatal]
